FAERS Safety Report 5061684-0 (Version None)
Quarter: 2006Q3

REPORT INFORMATION
  Report Type: 
  Country: None (occurrence: None)
  Receive Date: 20060726
  Receipt Date: 20060526
  Transmission Date: 20061208
  Serious: Yes (Other)
  Sender: FDA-Public Use
  Company Number: PHEH2006US06971

PATIENT
  Age: 21 Year
  Sex: Female
  Weight: 49.206 kg

DRUGS (2)
  1. GRISEOFULVIN [Suspect]
     Indication: NAIL TINEA
     Route: 048
  2. LAMISIL [Suspect]
     Indication: NAIL TINEA
     Dosage: 250 MG, QD
     Route: 048

REACTIONS (2)
  - PHOTOSENSITIVITY REACTION [None]
  - RASH GENERALISED [None]
